FAERS Safety Report 7804823-8 (Version None)
Quarter: 2011Q4

REPORT INFORMATION
  Report Type: 
  Country: None (occurrence: None)
  Receive Date: 20111010
  Receipt Date: 20110929
  Transmission Date: 20120403
  Serious: Yes (Death, Hospitalization)
  Sender: FDA-Public Use
  Company Number: GB-UCBSA-037338

PATIENT
  Age: 67 Year
  Sex: Male
  Weight: 73.02 kg

DRUGS (9)
  1. LEFLUNOMIDE [Concomitant]
     Indication: RHEUMATOID ARTHRITIS
     Route: 048
     Dates: start: 20051003, end: 20110615
  2. CALCIUM CARBONATE [Concomitant]
  3. ACEMETACIN [Concomitant]
  4. OMEPRAZOLE [Concomitant]
     Indication: DYSPNOEA
     Route: 048
     Dates: end: 20110713
  5. ALENDRONIC ACID [Concomitant]
     Route: 048
     Dates: end: 20110713
  6. CIMZIA [Suspect]
     Indication: RHEUMATOID ARTHRITIS
     Dosage: LOADING DOSE 400 MG
     Route: 058
     Dates: start: 20110310, end: 20110602
  7. PREDNISOLONE [Concomitant]
     Indication: RHEUMATOID ARTHRITIS
     Route: 048
     Dates: start: 20080614, end: 20110713
  8. ASCORBIC ACID [Concomitant]
  9. BISOPROLOL FUMARATE [Concomitant]
     Indication: MYOCARDIAL ISCHAEMIA
     Route: 048
     Dates: end: 20110713

REACTIONS (4)
  - ACUTE INTERSTITIAL PNEUMONITIS [None]
  - ALVEOLITIS FIBROSING [None]
  - CREPITATIONS [None]
  - RESPIRATORY FAILURE [None]
